FAERS Safety Report 11675992 (Version 2)
Quarter: 2015Q4

REPORT INFORMATION
  Report Type: Spontaneous
  Country: US (occurrence: US)
  Receive Date: 20151028
  Receipt Date: 20151214
  Transmission Date: 20160304
  Serious: Yes (Other)
  Sender: FDA-Public Use
  Company Number: US-SA-2015SA166949

PATIENT
  Age: 69 Year
  Sex: Male
  Weight: 129.27 kg

DRUGS (15)
  1. BYETTA [Concomitant]
     Active Substance: EXENATIDE
     Indication: HYPERTENSION
     Dosage: 100 MCL
  2. VENTOLIN [Concomitant]
     Active Substance: ALBUTEROL SULFATE
  3. ACTOS [Concomitant]
     Active Substance: PIOGLITAZONE HYDROCHLORIDE
  4. ADVAIR HFA [Concomitant]
     Active Substance: FLUTICASONE PROPIONATE\SALMETEROL XINAFOATE
     Dosage: 250/50
  5. ATENOLOL. [Concomitant]
     Active Substance: ATENOLOL
     Dosage: 50-25
  6. L-LYSINE [Concomitant]
     Active Substance: LYSINE
  7. LANTUS SOLOSTAR [Suspect]
     Active Substance: INSULIN GLARGINE
     Indication: TYPE 2 DIABETES MELLITUS
     Dosage: DOSE:25 UNITS; 20 UNITS, MORNING; NIGHT
     Route: 065
  8. SOLOSTAR [Concomitant]
     Active Substance: DEVICE
     Indication: TYPE 2 DIABETES MELLITUS
  9. BENAZEPRIL [Concomitant]
     Active Substance: BENAZEPRIL HYDROCHLORIDE
  10. GARLIC. [Concomitant]
     Active Substance: GARLIC
     Dosage: OIL
  11. PRAVASTATIN [Concomitant]
     Active Substance: PRAVASTATIN\PRAVASTATIN SODIUM
  12. BABY ASPIRIN [Concomitant]
     Active Substance: ASPIRIN
  13. WELLBUTRIN [Concomitant]
     Active Substance: BUPROPION HYDROCHLORIDE
     Dosage: SR
  14. METFORMIN [Concomitant]
     Active Substance: METFORMIN HYDROCHLORIDE
  15. SPIRIVA [Concomitant]
     Active Substance: TIOTROPIUM BROMIDE MONOHYDRATE

REACTIONS (3)
  - Drug administration error [Unknown]
  - Cataract operation [Unknown]
  - Intraocular lens implant [Unknown]
